FAERS Safety Report 6886279-5 (Version None)
Quarter: 2010Q3

REPORT INFORMATION
  Report Type: 
  Country: None (occurrence: None)
  Receive Date: 20100729
  Receipt Date: 20090501
  Transmission Date: 20110219
  Serious: No
  Sender: FDA-Public Use
  Company Number: US-PFIZER INC-2009206612

PATIENT
  Age: 63 Year
  Sex: Female

DRUGS (19)
  1. CELEBREX [Suspect]
     Indication: ARTHRITIS
  2. IBANDRONIC ACID [Suspect]
     Indication: OSTEOPENIA
     Dosage: 150 MG, UNK
     Dates: start: 20081201
  3. PROTONIX [Concomitant]
  4. ATENOLOL [Concomitant]
  5. POTASSIUM [Concomitant]
  6. LEVOTHYROXINE [Concomitant]
  7. TRIAMTERENE [Concomitant]
  8. LISINOPRIL [Concomitant]
  9. CYMBALTA [Concomitant]
  10. ZYRTEC [Concomitant]
  11. KLONOPIN [Concomitant]
  12. SIMVASTATIN [Concomitant]
  13. ANAFRANIL [Concomitant]
  14. CALTRATE + D [Concomitant]
  15. LYCOPENE [Concomitant]
  16. DULCOLAX [Concomitant]
  17. HYALURONATE SODIUM [Concomitant]
  18. PREDNISONE [Concomitant]
  19. HYDROXYCHLOROQUINE [Concomitant]

REACTIONS (5)
  - CONSTIPATION [None]
  - ORAL HERPES [None]
  - OSTEOARTHRITIS [None]
  - PRURITUS [None]
  - RENAL FUNCTION TEST ABNORMAL [None]
